FAERS Safety Report 9158095 (Version 1)
Quarter: 2013Q1

REPORT INFORMATION
  Report Type: Spontaneous
  Country: MX (occurrence: MX)
  Receive Date: 20130312
  Receipt Date: 20130312
  Transmission Date: 20140127
  Serious: Yes (Death)
  Sender: FDA-Public Use
  Company Number: MX-GLAXOSMITHKLINE-A1015366A

PATIENT
  Sex: 0

DRUGS (1)
  1. ELTROMBOPAG [Suspect]
     Indication: IDIOPATHIC THROMBOCYTOPENIC PURPURA
     Route: 065

REACTIONS (1)
  - Death [Fatal]
